FAERS Safety Report 24057297 (Version 1)
Quarter: 2024Q3

REPORT INFORMATION
  Report Type: Spontaneous
  Country: US (occurrence: US)
  Receive Date: 20240706
  Receipt Date: 20240706
  Transmission Date: 20241017
  Serious: No
  Sender: ABBVIE
  Company Number: US-ABBVIE-5826246

PATIENT
  Sex: Female

DRUGS (1)
  1. QULIPTA [Suspect]
     Active Substance: ATOGEPANT
     Indication: Migraine prophylaxis
     Dosage: FORM STRENGTH: 60 MG
     Route: 048
     Dates: start: 2023

REACTIONS (2)
  - Eye inflammation [Unknown]
  - Adverse drug reaction [Unknown]
